FAERS Safety Report 5257129-8 (Version None)
Quarter: 2007Q1

REPORT INFORMATION
  Report Type: 
  Country: None (occurrence: None)
  Receive Date: 20070307
  Receipt Date: 20070227
  Transmission Date: 20070707
  Serious: Yes (Death)
  Sender: FDA-Public Use
  Company Number: NL-JNJFOC-20070206440

PATIENT
  Sex: Female
  Weight: 60 kg

DRUGS (10)
  1. INFLIXIMAB, RECOMBINANT [Suspect]
     Indication: RHEUMATOID ARTHRITIS
     Route: 042
  2. DEXAMETHASONE [Concomitant]
     Indication: RHEUMATOID ARTHRITIS
     Route: 048
  3. TEMAZEPAM [Concomitant]
     Indication: SLEEP DISORDER
     Route: 048
  4. FENTANYL [Concomitant]
     Indication: PAIN
     Route: 062
  5. OXYCONTIN [Concomitant]
     Indication: PAIN
     Route: 065
  6. ACETAMINOPHEN [Concomitant]
     Indication: PAIN
     Route: 065
  7. CELECOXIB [Concomitant]
     Indication: PAIN
     Route: 048
  8. LACTULOSE [Concomitant]
     Indication: CONSTIPATION
     Route: 065
  9. ONDANSETRON [Concomitant]
     Indication: NAUSEA
     Route: 048
  10. PANTOZOL [Concomitant]
     Indication: GASTROINTESTINAL DISORDER THERAPY
     Route: 065

REACTIONS (1)
  - LUNG CANCER METASTATIC [None]
